FAERS Safety Report 7141162-5 (Version None)
Quarter: 2010Q4

REPORT INFORMATION
  Report Type: 
  Country: None (occurrence: None)
  Receive Date: 20101122
  Receipt Date: 20101112
  Transmission Date: 20110411
  Serious: Yes (Other)
  Sender: FDA-Public Use
  Company Number: 2010MA004569

PATIENT
  Age: 69 Year
  Sex: Male

DRUGS (13)
  1. ISOSORBIDE MONONITRATE EXTENDED-RELEASE TABLETS, 30 MG (PUREPAC) (ISOS [Suspect]
     Dosage: 30 MG;BID
  2. SIMVASTATIN [Suspect]
  3. FOLIC ACID [Suspect]
     Dosage: 15 MG;QW
  4. ATENOLOL [Suspect]
     Dosage: 25 MG;QD
  5. METHOTREXATE [Suspect]
     Dosage: 17. MG;QW;
  6. NICORANDIL (NICORANDIL) [Suspect]
     Dosage: 10 MG;BID;
  7. CANDESARTAN CILEXETIL [Suspect]
     Dosage: 8 MG;QD
  8. PRAVASTATIN [Suspect]
     Dosage: 20 MG;QD;
  9. FLURBIPROFEN [Suspect]
     Dosage: 50 MG;BID
  10. LANSOPRAZOLE [Suspect]
     Dosage: 30 MG;QD;
  11. ACETYLSALICYLIC ACID [Concomitant]
  12. GUAR GUM [Concomitant]
  13. CALCIPOTRIOL [Concomitant]

REACTIONS (1)
  - ABNORMAL DREAMS [None]
